FAERS Safety Report 17825223 (Version 1)
Quarter: 2020Q2

REPORT INFORMATION
  Report Type: Spontaneous
  Country: US (occurrence: US)
  Receive Date: 20200526
  Receipt Date: 20200526
  Transmission Date: 20200714
  Serious: Yes (Other)
  Sender: FDA-Public Use
  Company Number: US-AKORN PHARMACEUTICALS-2020AKN00550

PATIENT
  Age: 26 Year
  Sex: Female
  Weight: 122 kg

DRUGS (4)
  1. MYORISAN [Suspect]
     Active Substance: ISOTRETINOIN
     Indication: ACNE
     Dosage: 40 MG, 1X/DAY
     Route: 048
     Dates: start: 20200303, end: 20200331
  2. PARAGARD T 380A [Concomitant]
     Active Substance: COPPER
     Route: 015
  3. VITAMIN D [Concomitant]
     Active Substance: VITAMIN D NOS
  4. OMEPRAZOLE. [Concomitant]
     Active Substance: OMEPRAZOLE

REACTIONS (4)
  - Off label use [Recovered/Resolved]
  - Headache [Recovered/Resolved]
  - Stress [Unknown]
  - Unevaluable event [Unknown]

NARRATIVE: CASE EVENT DATE: 202003
